FAERS Safety Report 17185605 (Version 7)
Quarter: 2020Q2

REPORT INFORMATION
  Report Type: Report from Study
  Country: US (occurrence: US)
  Receive Date: 20191220
  Receipt Date: 20200512
  Transmission Date: 20200713
  Serious: Yes (Death, Hospitalization)
  Sender: FDA-Public Use
  Company Number: US-GILEAD-2019-0443340

PATIENT
  Age: 60 Year
  Sex: Male
  Weight: 51.3 kg

DRUGS (24)
  1. ZOVIRAX [Concomitant]
     Active Substance: ACYCLOVIR
     Dosage: UNK
     Dates: start: 20191129, end: 20200114
  2. KEPPRA [Concomitant]
     Active Substance: LEVETIRACETAM
     Dosage: 500,MG,TWICE DAILY
     Route: 048
     Dates: start: 20191202
  3. ROXICODONE [Concomitant]
     Active Substance: OXYCODONE HYDROCHLORIDE
     Dosage: 15,MG,AS NECESSARY
     Route: 048
     Dates: start: 20191208
  4. LIDODERM [Concomitant]
     Active Substance: LIDOCAINE
  5. PEPCID [Concomitant]
     Active Substance: FAMOTIDINE
     Dosage: 20,MG,TWICE DAILY
     Dates: start: 20191130, end: 20200221
  6. ZOFRAN [Concomitant]
     Active Substance: ONDANSETRON HYDROCHLORIDE
     Dosage: 8,MG,AS NECESSARY
     Route: 041
     Dates: start: 20191205
  7. REFRESH CELLUVISC [Concomitant]
     Active Substance: CARBOXYMETHYLCELLULOSE SODIUM
     Dosage: 1,OTHER,AS NECESSARY (%OPHTHALMIC SOL 1DROP )
     Route: 047
     Dates: start: 20191129
  8. COLACE [Concomitant]
     Active Substance: DOCUSATE SODIUM
     Dosage: UNK
     Dates: start: 20191129, end: 20191129
  9. ROXICODONE [Concomitant]
     Active Substance: OXYCODONE HYDROCHLORIDE
     Dosage: 5,MG,AS NECESSARY
     Route: 048
     Dates: start: 20191129, end: 20200305
  10. DIPHENHYDRAMINE. [Concomitant]
     Active Substance: DIPHENHYDRAMINE
  11. ZOFRAN [Concomitant]
     Active Substance: ONDANSETRON HYDROCHLORIDE
     Dosage: 4,MG,AS NECESSARY
     Route: 058
     Dates: start: 20191130
  12. CYCLOPHOSPHAMIDE. [Suspect]
     Active Substance: CYCLOPHOSPHAMIDE
     Indication: BONE MARROW CONDITIONING REGIMEN
     Dosage: ^500^ DAILY
     Route: 042
     Dates: start: 20191127, end: 20191129
  13. RED BLOOD CELLS [Concomitant]
     Active Substance: HUMAN RED BLOOD CELL
     Dosage: UNK
     Dates: start: 20200125, end: 20200125
  14. ALLOPURINOL. [Concomitant]
     Active Substance: ALLOPURINOL
     Dosage: UNK
     Dates: start: 20191130
  15. KEPPRA [Concomitant]
     Active Substance: LEVETIRACETAM
     Dosage: UNK; 500 MG OTHER
     Dates: start: 20191201
  16. ROXICODONE [Concomitant]
     Active Substance: OXYCODONE HYDROCHLORIDE
     Dosage: 10,MG,AS NECESSARY
     Route: 048
     Dates: start: 20191130, end: 20200305
  17. RED BLOOD CELLS [Concomitant]
     Active Substance: HUMAN RED BLOOD CELL
     Dosage: UNK
     Dates: start: 20191129, end: 20191129
  18. ROMYCIN [AZITHROMYCIN] [Concomitant]
     Dosage: 5,OTHER,THREE TIMES DAILY (5 MG/GRAM (0.5 %)
     Route: 047
     Dates: start: 20191129
  19. NALOXONE [Concomitant]
     Active Substance: NALOXONE
     Dosage: 4,MG,AS NECESSARY (ACITUATION SPRY)
     Route: 045
     Dates: start: 20190723
  20. POTASSIUM CHLORIDE. [Concomitant]
     Active Substance: POTASSIUM CHLORIDE
     Dosage: 10-60,OTHER,AS NECESSARY
     Route: 041
     Dates: start: 20191130
  21. ROMYCIN [AZITHROMYCIN] [Concomitant]
     Dosage: 5,OTHER,THREE TIMES DAILY  (5 MG/GRAM (0.5 %)
     Route: 047
     Dates: start: 20191201
  22. AXICABTAGENE CILOLEUCEL [Suspect]
     Active Substance: AXICABTAGENE CILOLEUCEL
     Indication: DIFFUSE LARGE B-CELL LYMPHOMA
     Dosage: UNK
     Route: 042
     Dates: start: 20191202, end: 20191202
  23. FLUDARABINE [Suspect]
     Active Substance: FLUDARABINE PHOSPHATE
     Indication: BONE MARROW CONDITIONING REGIMEN
     Dosage: ^30^ DAILY
     Route: 042
     Dates: start: 20191127, end: 20191129
  24. POLYETHYLENE GLYCOL [Concomitant]
     Active Substance: POLYETHYLENE GLYCOLS
     Dosage: UNK
     Dates: start: 20191130

REACTIONS (6)
  - Neutrophil count decreased [Recovered/Resolved]
  - Neutrophil count decreased [Recovered/Resolved]
  - Pyrexia [Recovered/Resolved]
  - Diffuse large B-cell lymphoma [Fatal]
  - Cytokine release syndrome [Recovered/Resolved]
  - Pyrexia [Recovered/Resolved]

NARRATIVE: CASE EVENT DATE: 20191206
